FAERS Safety Report 18228512 (Version 2)
Quarter: 2020Q4

REPORT INFORMATION
  Report Type: Spontaneous
  Country: US (occurrence: US)
  Receive Date: 20200903
  Receipt Date: 20201026
  Transmission Date: 20210113
  Serious: Yes (Other)
  Sender: FDA-Public Use
  Company Number: US-BAYER-2020-185585

PATIENT
  Age: 48 Year
  Sex: Female

DRUGS (1)
  1. BETASERON [Suspect]
     Active Substance: INTERFERON BETA-1B
     Indication: MULTIPLE SCLEROSIS
     Dosage: 0.3 MG
     Dates: start: 200501, end: 202007

REACTIONS (7)
  - Rash [Not Recovered/Not Resolved]
  - Chills [None]
  - Systemic lupus erythematosus [Not Recovered/Not Resolved]
  - Injection site rash [Not Recovered/Not Resolved]
  - Cellulitis [Not Recovered/Not Resolved]
  - Pain [None]
  - Blood pressure increased [Not Recovered/Not Resolved]
